FAERS Safety Report 17377288 (Version 1)
Quarter: 2020Q1

REPORT INFORMATION
  Report Type: Spontaneous
  Country: US (occurrence: US)
  Receive Date: 20200122
  Receipt Date: 20200122
  Transmission Date: 20200409
  Serious: Yes (Disabling, Other)
  Sender: FDA-Public Use
  Company Number: None

PATIENT
  Age: 71 Year
  Sex: Female
  Weight: 61.69 kg

DRUGS (1)
  1. BUPRENORPHINE TRANSDERMAL SYSTEM [Suspect]
     Active Substance: BUPRENORPHINE
     Indication: SPINAL FRACTURE
     Dosage: ?          QUANTITY:4 PATCHES;?
     Route: 059
     Dates: start: 20191215

REACTIONS (6)
  - Blood pressure measurement [None]
  - Dysuria [None]
  - Constipation [None]
  - Gait disturbance [None]
  - Migraine [None]
  - Asthma [None]

NARRATIVE: CASE EVENT DATE: 20191213
